FAERS Safety Report 7798942-2 (Version None)
Quarter: 2011Q4

REPORT INFORMATION
  Report Type: 
  Country: None (occurrence: None)
  Receive Date: 20111006
  Receipt Date: 20110930
  Transmission Date: 20120403
  Serious: No
  Sender: FDA-Public Use
  Company Number: US-PFIZER INC-2011235601

PATIENT

DRUGS (1)
  1. ESTRING [Suspect]
     Dosage: UNK

REACTIONS (1)
  - ALOPECIA [None]
